FAERS Safety Report 12441180 (Version 1)
Quarter: 2016Q2

REPORT INFORMATION
  Report Type: Spontaneous
  Country: NL (occurrence: NL)
  Receive Date: 20160607
  Receipt Date: 20160607
  Transmission Date: 20160815
  Serious: Yes (Congenital Anomaly)
  Sender: FDA-Public Use
  Company Number: NL-ASTRAZENECA-2016SE58406

PATIENT
  Age: 0 Day
  Sex: Male

DRUGS (2)
  1. OMEPRAZOL [Suspect]
     Active Substance: OMEPRAZOLE
     Indication: GASTRIC DISORDER
     Route: 064
     Dates: start: 2016
  2. FOLIUMZUUR [Concomitant]
     Active Substance: FOLIC ACID
     Route: 064

REACTIONS (1)
  - Accessory auricle [Not Recovered/Not Resolved]

NARRATIVE: CASE EVENT DATE: 20160519
